FAERS Safety Report 23185137 (Version 5)
Quarter: 2024Q3

REPORT INFORMATION
  Report Type: Spontaneous
  Country: JP (occurrence: JP)
  Receive Date: 20231115
  Receipt Date: 20240715
  Transmission Date: 20241016
  Serious: Yes (Hospitalization, Other)
  Sender: TAKEDA
  Company Number: JP-SA-2023SA342682

PATIENT
  Age: 3 Year
  Sex: Male
  Weight: 18 kg

DRUGS (4)
  1. ELAPRASE [Suspect]
     Active Substance: IDURSULFASE
     Indication: Mucopolysaccharidosis II
     Dosage: 0.5 MILLIGRAM/KILOGRAM, QD
     Route: 041
     Dates: start: 20231024, end: 20231031
  2. ELAPRASE [Suspect]
     Active Substance: IDURSULFASE
     Dosage: 9 MILLIGRAM, 1/WEEK
     Route: 041
     Dates: start: 20240227
  3. PABINAFUSP ALFA [Suspect]
     Active Substance: PABINAFUSP ALFA
     Indication: Mucopolysaccharidosis II
     Dosage: 36 MILLIGRAM, 1/WEEK
     Route: 065
     Dates: start: 20231121, end: 20240221
  4. IDURSULFASE BETA [Concomitant]
     Active Substance: IDURSULFASE BETA
     Indication: Product used for unknown indication
     Dosage: 30 MILLIGRAM, Q4WEEKS
     Route: 065
     Dates: start: 20240227

REACTIONS (6)
  - Meningitis [Recovered/Resolved]
  - Pyrexia [Recovered/Resolved]
  - Administration related reaction [Recovered/Resolved]
  - Heart rate increased [Recovered/Resolved]
  - Chest discomfort [Recovered/Resolved]
  - Cough [Recovered/Resolved]

NARRATIVE: CASE EVENT DATE: 20231101
